FAERS Safety Report 23902576 (Version 1)
Quarter: 2024Q2

REPORT INFORMATION
  Report Type: Spontaneous
  Country: RU (occurrence: None)
  Receive Date: 20240527
  Receipt Date: 20240527
  Transmission Date: 20240716
  Serious: Yes (Hospitalization)
  Sender: FDA-Public Use
  Company Number: RU-ROCHE-3566289

PATIENT
  Age: 56 Year
  Sex: Male

DRUGS (2)
  1. EMICIZUMAB [Suspect]
     Active Substance: EMICIZUMAB
     Indication: Factor VIII deficiency
     Dosage: WEEKS 1-4
     Route: 058
     Dates: start: 20220511
  2. EMICIZUMAB [Suspect]
     Active Substance: EMICIZUMAB
     Dosage: FROM WEEK 5
     Route: 058

REACTIONS (1)
  - Incision site haematoma [Unknown]
